FAERS Safety Report 15046586 (Version 1)
Quarter: 2018Q2

REPORT INFORMATION
  Report Type: Spontaneous
  Country: DE (occurrence: DE)
  Receive Date: 20180621
  Receipt Date: 20180621
  Transmission Date: 20180711
  Serious: Yes (Hospitalization)
  Sender: FDA-Public Use
  Company Number: DE-TEVA-2018-DE-910920

PATIENT
  Age: 79 Year
  Sex: Female

DRUGS (3)
  1. GODAMED [Suspect]
     Active Substance: ASPIRIN
     Dosage: NK MG, NK
     Route: 065
  2. SYREA [Suspect]
     Active Substance: HYDROXYUREA
     Dosage: NK MG, NK
     Route: 065
  3. COTRIM FORTE [Suspect]
     Active Substance: SULFAMETHOXAZOLE\TRIMETHOPRIM
     Dosage: 800 | 160 MG, SINCE 24.05.2017
     Route: 065

REACTIONS (2)
  - Pancytopenia [Unknown]
  - Anaemia [Unknown]
